FAERS Safety Report 6904160-X (Version None)
Quarter: 2010Q3

REPORT INFORMATION
  Report Type: 
  Country: None (occurrence: None)
  Receive Date: 20100804
  Receipt Date: 20090319
  Transmission Date: 20110219
  Serious: No
  Sender: FDA-Public Use
  Company Number: US-PFIZER INC-2008155375

PATIENT
  Sex: Female
  Weight: 95.2 kg

DRUGS (7)
  1. LYRICA [Suspect]
     Indication: PAIN
     Dosage: 25 MG, 3X/DAY
     Dates: start: 20081209
  2. METFORMIN [Concomitant]
     Dosage: UNK
  3. PLAVIX [Concomitant]
     Dosage: UNK
  4. PRAVACHOL [Concomitant]
     Dosage: UNK
  5. FUROSEMIDE [Concomitant]
     Dosage: UNK
  6. FOLIC ACID [Concomitant]
     Dosage: UNK
  7. AMLODIPINE BESYLATE/VALSARTAN [Concomitant]
     Dosage: UNK

REACTIONS (5)
  - ASTHENIA [None]
  - DRY EYE [None]
  - HYPERHIDROSIS [None]
  - HYPERSOMNIA [None]
  - VISION BLURRED [None]
